FAERS Safety Report 7649382-8 (Version None)
Quarter: 2011Q3

REPORT INFORMATION
  Report Type: 
  Country: None (occurrence: None)
  Receive Date: 20110802
  Receipt Date: 20110718
  Transmission Date: 20111222
  Serious: Yes (Other)
  Sender: FDA-Public Use
  Company Number: GB-UCBSA-035603

PATIENT
  Age: 45 Year
  Sex: Male

DRUGS (4)
  1. CARBAMAZEPINE [Concomitant]
     Dosage: 600 MG IN THE MORNING AND 800 MG IN THE EVENING
     Route: 048
  2. ZONISAMIDE [Concomitant]
     Dosage: 200(UNITS UNSPECIFIED) TWICE DAILY: 400 (UNITS UNSPECIFIED)
     Route: 048
     Dates: start: 20081101
  3. VIMPAT [Suspect]
     Dosage: STARTED AT 25 MG DAILY AND INCREASED TO 25 MG FORTNIGHTLY
     Route: 048
     Dates: start: 20110504, end: 20110604
  4. PREGABALIN [Concomitant]
     Dosage: 300 (UNITS UNSPECIFIED) TWICE DAILY: 600 (UNITS UNSPECIFIED)
     Route: 048
     Dates: start: 20050201

REACTIONS (8)
  - MALAISE [None]
  - MOVEMENT DISORDER [None]
  - CONVULSION [None]
  - AMNESIA [None]
  - RIB FRACTURE [None]
  - FALL [None]
  - CONFUSIONAL STATE [None]
  - HEADACHE [None]
